FAERS Safety Report 12398298 (Version 1)
Quarter: 2016Q2

REPORT INFORMATION
  Report Type: Spontaneous
  Country: US (occurrence: None)
  Receive Date: 20160523
  Receipt Date: 20160523
  Transmission Date: 20160815
  Serious: Yes (Life-Threatening)
  Sender: FDA-Public Use
  Company Number: None

PATIENT
  Age: 71 Year
  Sex: Male

DRUGS (2)
  1. ESCITALOPRAM [Suspect]
     Active Substance: ESCITALOPRAM OXALATE
     Indication: DEPRESSION
     Route: 048
     Dates: start: 20150727, end: 20160201
  2. RISPERIDONE, 0.5 MG [Suspect]
     Active Substance: RISPERIDONE
     Indication: PSYCHOTIC DISORDER
     Route: 048
     Dates: start: 20150902, end: 20160129

REACTIONS (5)
  - Lymphocyte count decreased [None]
  - Blood alkaline phosphatase increased [None]
  - Electrocardiogram QT prolonged [None]
  - Protein total decreased [None]
  - Blood glucose increased [None]

NARRATIVE: CASE EVENT DATE: 20160129
